FAERS Safety Report 5381576-7 (Version None)
Quarter: 2007Q2

REPORT INFORMATION
  Report Type: 
  Country: None (occurrence: None)
  Receive Date: 20070629
  Receipt Date: 20060815
  Transmission Date: 20071010
  Serious: Yes (Death)
  Sender: FDA-Public Use
  Company Number: 2005063547

PATIENT
  Age: 14 Year
  Sex: Male
  Weight: 64.4108 kg

DRUGS (2)
  1. ZOLOFT [Suspect]
     Indication: DEPRESSION
     Dosage: 50 MG (50 MG, 1 IN 1 D), ORAL
     Route: 048
     Dates: start: 20030928
  2. CENTRUM (MINERALS NOS, VITAMINS NOS) [Concomitant]

REACTIONS (1)
  - COMPLETED SUICIDE [None]
